FAERS Safety Report 14881283 (Version 1)
Quarter: 2018Q2

REPORT INFORMATION
  Report Type: Spontaneous
  Country: US (occurrence: US)
  Receive Date: 20180425
  Receipt Date: 20180425
  Transmission Date: 20180711
  Serious: Yes (Other)
  Sender: FDA-Public Use
  Company Number: None

PATIENT
  Age: 69 Year
  Sex: Male
  Weight: 103.5 kg

DRUGS (12)
  1. CULTURELLE [Concomitant]
     Active Substance: LACTOBACILLUS RHAMNOSUS
  2. VITAMIN D3 [Concomitant]
     Active Substance: CHOLECALCIFEROL
  3. LEVOTHYROXINE. [Concomitant]
     Active Substance: LEVOTHYROXINE
  4. DIGESTIVE HEALTH [Concomitant]
  5. NATURE MADE VITAMIN B12 [Concomitant]
  6. PROBITIC [Concomitant]
  7. OMEPRAZOLE. [Concomitant]
     Active Substance: OMEPRAZOLE
  8. SAW PALMETTO [Concomitant]
     Active Substance: HERBALS\SAW PALMETTO
  9. COLCHICINE. [Concomitant]
     Active Substance: COLCHICINE
  10. CIPROFLOXACIN. [Suspect]
     Active Substance: CIPROFLOXACIN
     Indication: PROSTATITIS
     Dosage: ?          QUANTITY:1 DF DOSAGE FORM;?
     Route: 048
     Dates: start: 20171004, end: 20171013
  11. LISINOPRIL. [Concomitant]
     Active Substance: LISINOPRIL
  12. LOW DOSE ASPIRIN [Concomitant]
     Active Substance: ASPIRIN

REACTIONS (3)
  - Tendonitis [None]
  - Arthralgia [None]
  - Tendon rupture [None]
